FAERS Safety Report 4951125-3 (Version None)
Quarter: 2006Q1

REPORT INFORMATION
  Report Type: 
  Country: None (occurrence: None)
  Receive Date: 20060322
  Receipt Date: 20060317
  Transmission Date: 20060701
  Serious: Yes (Other)
  Sender: FDA-Public Use
  Company Number: GB-MERCK-0603GBR00075

PATIENT
  Age: 40 Year
  Sex: Female
  Weight: 53 kg

DRUGS (5)
  1. SINGULAIR [Suspect]
     Indication: ASTHMA
     Route: 048
     Dates: start: 20051231, end: 20060225
  2. DOTHIEPIN HYDROCHLORIDE [Concomitant]
     Indication: DEPRESSION
     Route: 048
     Dates: start: 20051101
  3. SALMETEROL [Concomitant]
     Indication: ASTHMA
     Route: 055
     Dates: start: 20051101
  4. BECLOMETHASONE DIPROPIONATE [Concomitant]
     Indication: ASTHMA
     Route: 055
     Dates: start: 20051101
  5. ETHINYL ESTRADIOL AND NORETHINDRONE ACETATE [Concomitant]
     Indication: CONTRACEPTION
     Route: 048
     Dates: start: 20051214

REACTIONS (3)
  - AGGRESSION [None]
  - AGITATION [None]
  - MOOD SWINGS [None]
